FAERS Safety Report 8313039-0 (Version None)
Quarter: 2012Q2

REPORT INFORMATION
  Report Type: 
  Country: None (occurrence: None)
  Receive Date: 20120426
  Receipt Date: 20120419
  Transmission Date: 20120825
  Serious: Yes (Hospitalization)
  Sender: FDA-Public Use
  Company Number: US-BAYER-2011-116802

PATIENT
  Age: 17 Year
  Sex: Female
  Weight: 57 kg

DRUGS (4)
  1. YAZ [Suspect]
     Indication: ACNE
     Dosage: UNK
     Dates: start: 20071101, end: 20080214
  2. MOTRIN [Concomitant]
     Indication: MUSCLE SPASMS
     Dosage: 800 MG, UNK
  3. COUGH AND COLD PREPARATIONS [Concomitant]
  4. PLAVIX [Concomitant]

REACTIONS (8)
  - PELVIC VENOUS THROMBOSIS [None]
  - EMOTIONAL DISTRESS [None]
  - DEEP VEIN THROMBOSIS [None]
  - PAIN [None]
  - INJURY [None]
  - GENERAL PHYSICAL HEALTH DETERIORATION [None]
  - ANXIETY [None]
  - MENTAL DISORDER [None]
